FAERS Safety Report 4448600-7 (Version None)
Quarter: 2004Q3

REPORT INFORMATION
  Report Type: 
  Country: None (occurrence: None)
  Receive Date: 20040909
  Receipt Date: 20040830
  Transmission Date: 20050211
  Serious: Yes (Hospitalization)
  Sender: FDA-Public Use
  Company Number: MEDI-0002207

PATIENT
  Age: 50 Year
  Sex: Male

DRUGS (2)
  1. ETHYOL [Suspect]
     Indication: RADIOTHERAPY
  2. RADIATION THERAPY [Concomitant]

REACTIONS (2)
  - MUCOSAL INFLAMMATION [None]
  - NASOPHARYNGEAL DISORDER [None]
